FAERS Safety Report 7030193-1 (Version None)
Quarter: 2010Q4

REPORT INFORMATION
  Report Type: 
  Country: None (occurrence: None)
  Receive Date: 20101006
  Receipt Date: 20100929
  Transmission Date: 20110411
  Serious: Yes (Death, Other)
  Sender: FDA-Public Use
  Company Number: BE-BAYER-201041200GPV

PATIENT
  Sex: Male

DRUGS (1)
  1. NEXAVAR [Suspect]
     Indication: HEPATIC NEOPLASM MALIGNANT
     Dosage: TOTAL DAILY DOSE: 400 MG
     Route: 048

REACTIONS (6)
  - ACUTE HEPATIC FAILURE [None]
  - COMA [None]
  - DIARRHOEA [None]
  - ENCEPHALOPATHY [None]
  - HEPATITIS TOXIC [None]
  - LIVER FUNCTION TEST ABNORMAL [None]
